FAERS Safety Report 19471059 (Version 1)
Quarter: 2021Q2

REPORT INFORMATION
  Report Type: Spontaneous
  Country: US (occurrence: US)
  Receive Date: 20210628
  Receipt Date: 20210628
  Transmission Date: 20210717
  Serious: Yes (Hospitalization)
  Sender: FDA-Public Use
  Company Number: None

PATIENT
  Age: 39 Year
  Sex: Male

DRUGS (3)
  1. MONTELUKAST [Suspect]
     Active Substance: MONTELUKAST SODIUM
     Indication: PREMEDICATION
     Dosage: ?          OTHER FREQUENCY:ONCE;?
     Route: 048
     Dates: start: 20210426, end: 20210614
  2. DIPHENHYDRAMINE 50 MG PO ONCE [Concomitant]
     Dates: start: 20210426
  3. ACETAMINOPHEN 650 MG PO ONCE [Concomitant]
     Dates: start: 20210426

REACTIONS (7)
  - Somnolence [None]
  - Agitation [None]
  - Neuropsychiatric symptoms [None]
  - Feeling abnormal [None]
  - Infusion related reaction [None]
  - Unresponsive to stimuli [None]
  - Electroencephalogram abnormal [None]

NARRATIVE: CASE EVENT DATE: 20210614
